FAERS Safety Report 9766343 (Version 1)
Quarter: 2013Q4

REPORT INFORMATION
  Report Type: Spontaneous
  Country: US (occurrence: US)
  Receive Date: 20131217
  Receipt Date: 20131217
  Transmission Date: 20140711
  Serious: No
  Sender: FDA-Public Use
  Company Number: US-GLAXOSMITHKLINE-A1026272A

PATIENT
  Sex: Male

DRUGS (1)
  1. VOTRIENT [Suspect]
     Indication: PRODUCT USED FOR UNKNOWN INDICATION
     Dosage: 800MG PER DAY
     Dates: start: 201304

REACTIONS (5)
  - Adverse event [Unknown]
  - Platelet count decreased [Recovered/Resolved]
  - Urticaria [Unknown]
  - Epistaxis [Unknown]
  - Vein disorder [Unknown]
